FAERS Safety Report 15991096 (Version 1)
Quarter: 2019Q1

REPORT INFORMATION
  Report Type: Spontaneous
  Country: NO (occurrence: NO)
  Receive Date: 20190221
  Receipt Date: 20190221
  Transmission Date: 20190418
  Serious: Yes (Congenital Anomaly)
  Sender: FDA-Public Use
  Company Number: NO-JNJFOC-20190217388

PATIENT
  Sex: Female

DRUGS (4)
  1. LAMICTAL [Suspect]
     Active Substance: LAMOTRIGINE
     Indication: EPILEPSY
     Dosage: 450 MG/ DAY LAMICTAL THROUGHOUT PREGNANCY
     Route: 064
  2. FOLSYRE NAF [Concomitant]
     Active Substance: FOLIC ACID
     Indication: PROPHYLAXIS
     Dosage: 4 MG IN THE FIRST TRIMESTER, THEN 0.4 MG DAILY FOR THE REST OF THE??PREGNANCY
     Route: 064
     Dates: start: 2012, end: 201212
  3. FOLSYRE NAF [Concomitant]
     Active Substance: FOLIC ACID
     Indication: PROPHYLAXIS
     Route: 064
     Dates: start: 201211, end: 201305
  4. TOPIRAMATE. [Suspect]
     Active Substance: TOPIRAMATE
     Indication: EPILEPSY
     Dosage: MOTHER USED 550 MG / DAY TOPIMAX
     Route: 064
     Dates: start: 2012, end: 201305

REACTIONS (4)
  - Duane^s syndrome [Not Recovered/Not Resolved]
  - Foetal exposure during pregnancy [Recovered/Resolved]
  - Eye movement disorder [Not Recovered/Not Resolved]
  - Deafness [Not Recovered/Not Resolved]
